FAERS Safety Report 4832060-8 (Version None)
Quarter: 2005Q4

REPORT INFORMATION
  Report Type: 
  Country: None (occurrence: None)
  Receive Date: 20051116
  Receipt Date: 20051104
  Transmission Date: 20060501
  Serious: Yes (Hospitalization)
  Sender: FDA-Public Use
  Company Number: 136134

PATIENT
  Age: 62 Year
  Sex: Female
  Weight: 61.2356 kg

DRUGS (10)
  1. AVONEX [Suspect]
     Indication: MULTIPLE SCLEROSIS
     Dosage: 30 UG QW IM
     Route: 030
     Dates: start: 20000113, end: 20030801
  2. AVONEX [Suspect]
     Dosage: 30 UG QW IM
     Route: 030
     Dates: start: 20030801
  3. PREMARIN [Concomitant]
  4. LEVOTHROID [Concomitant]
  5. FOSAMAX [Concomitant]
  6. DIAZEPAM [Concomitant]
  7. FLONASE [Concomitant]
  8. SOTALOL [Concomitant]
  9. NABUMETONE [Concomitant]
  10. DIGOXIN [Concomitant]

REACTIONS (3)
  - ATRIAL FIBRILLATION [None]
  - BREAST CANCER FEMALE [None]
  - INFLUENZA LIKE ILLNESS [None]
